FAERS Safety Report 24293111 (Version 1)
Quarter: 2024Q3

REPORT INFORMATION
  Report Type: Spontaneous
  Country: US (occurrence: None)
  Receive Date: 20240906
  Receipt Date: 20240906
  Transmission Date: 20241016
  Serious: No
  Sender: DOMPE FARMACEUTICI
  Company Number: US-FARMAPROD-202311-3485

PATIENT
  Sex: Female

DRUGS (11)
  1. OXERVATE [Suspect]
     Active Substance: CENEGERMIN-BKBJ
     Indication: Neurotrophic keratopathy
     Route: 047
     Dates: start: 20231116
  2. OXERVATE [Suspect]
     Active Substance: CENEGERMIN-BKBJ
  3. PRISTIQ EXTENDED-RELEASE [Concomitant]
     Active Substance: DESVENLAFAXINE SUCCINATE
  4. TALTZ [Concomitant]
     Active Substance: IXEKIZUMAB
     Dosage: SYRINGE
  5. XALATAN [Concomitant]
     Active Substance: LATANOPROST
  6. ELIQUIS [Concomitant]
     Active Substance: APIXABAN
  7. SYSTANE (HYPROMELLOSE 2910 (4000 MPA.S)) [Concomitant]
     Active Substance: HYPROMELLOSE 2910 (4000 MPA.S)
     Dosage: 0.3 %-0.4%
  8. REFRESH CLASSIC [Concomitant]
     Active Substance: POLYVINYL ALCOHOL\POVIDONE
  9. CEQUA [Concomitant]
     Active Substance: CYCLOSPORINE
  10. JARDIANCE [Concomitant]
     Active Substance: EMPAGLIFLOZIN
  11. CHONDROITIN SULFATE (BOVINE)\GLUCOSAMINE SULFATE [Concomitant]
     Active Substance: CHONDROITIN SULFATE (BOVINE)\GLUCOSAMINE SULFATE

REACTIONS (8)
  - Wrong technique in product usage process [Unknown]
  - Device use issue [Unknown]
  - Visual impairment [Unknown]
  - Eyelid pain [Unknown]
  - Eye pain [Unknown]
  - Ocular hyperaemia [Unknown]
  - Product dose omission issue [Unknown]
  - Intentional product misuse [Unknown]
